FAERS Safety Report 7479321-4 (Version None)
Quarter: 2011Q2

REPORT INFORMATION
  Report Type: 
  Country: None (occurrence: None)
  Receive Date: 20110513
  Receipt Date: 20110512
  Transmission Date: 20111010
  Serious: Yes (Death)
  Sender: FDA-Public Use
  Company Number: GB-ABBOTT-11P-167-0724977-00

PATIENT
  Age: 54 Year
  Sex: Female

DRUGS (2)
  1. STEROIDS [Concomitant]
     Indication: PRODUCT USED FOR UNKNOWN INDICATION
     Dosage: HIGH DOSE.
  2. HUMIRA [Suspect]
     Indication: PRODUCT USED FOR UNKNOWN INDICATION
     Dates: start: 20101001

REACTIONS (2)
  - SYSTEMIC INFLAMMATORY RESPONSE SYNDROME [None]
  - CROHN'S DISEASE [None]
